FAERS Safety Report 8274509-7 (Version None)
Quarter: 2012Q2

REPORT INFORMATION
  Report Type: 
  Country: None (occurrence: None)
  Receive Date: 20120411
  Receipt Date: 20120327
  Transmission Date: 20120825
  Serious: Yes (Disabling, Other)
  Sender: FDA-Public Use
  Company Number: NO-ROCHE-GNE243119

PATIENT
  Sex: Male
  Weight: 62.066 kg

DRUGS (1)
  1. BLINDED RANIBIZUMAB [Suspect]
     Indication: MACULAR DEGENERATION
     Route: 050
     Dates: start: 20070504

REACTIONS (4)
  - DISEASE PROGRESSION [None]
  - RETINAL ARTERY OCCLUSION [None]
  - INTRAOCULAR PRESSURE INCREASED [None]
  - IRIS NEOVASCULARISATION [None]
